FAERS Safety Report 18329183 (Version 1)
Quarter: 2020Q3

REPORT INFORMATION
  Report Type: Spontaneous
  Country: JP (occurrence: JP)
  Receive Date: 20200930
  Receipt Date: 20200930
  Transmission Date: 20201103
  Serious: Yes (Hospitalization, Other)
  Sender: FDA-Public Use
  Company Number: JP-LUPIN PHARMACEUTICALS INC.-2020-04522

PATIENT
  Age: 70 Year
  Sex: Female

DRUGS (3)
  1. GENTAMYCIN [GENTAMICIN] [Concomitant]
     Active Substance: GENTAMICIN
     Indication: HEPATIC CYST INFECTION
     Dosage: UNK
     Route: 065
  2. METRONIDAZOLE. [Suspect]
     Active Substance: METRONIDAZOLE
     Indication: HEPATIC CYST INFECTION
     Dosage: 500 MILLIGRAM, TID
     Route: 048
  3. LEVOFLOXACIN. [Concomitant]
     Active Substance: LEVOFLOXACIN
     Indication: HEPATIC CYST INFECTION
     Dosage: UNK
     Route: 065

REACTIONS (1)
  - Toxic encephalopathy [Recovering/Resolving]
